FAERS Safety Report 21888287 (Version 1)
Quarter: 2023Q1

REPORT INFORMATION
  Report Type: Spontaneous
  Country: IT (occurrence: IT)
  Receive Date: 20230120
  Receipt Date: 20230120
  Transmission Date: 20230417
  Serious: Yes (Other)
  Sender: FDA-Public Use
  Company Number: IT-STERISCIENCE B.V.-2023-ST-000080

PATIENT
  Age: 38 Year
  Sex: Female

DRUGS (30)
  1. MIDAZOLAM [Suspect]
     Active Substance: MIDAZOLAM
     Indication: New onset refractory status epilepticus
     Dosage: 0.13 MILLIGRAM/KILOGRAM, QH
     Route: 065
     Dates: start: 201608
  2. MIDAZOLAM [Suspect]
     Active Substance: MIDAZOLAM
     Dosage: 0.133 MILLIGRAM/KILOGRAM, QH
     Route: 065
     Dates: start: 2016
  3. MIDAZOLAM [Suspect]
     Active Substance: MIDAZOLAM
     Dosage: 0.1 MILLIGRAM/KILOGRAM, QH
     Route: 065
  4. PROPOFOL [Suspect]
     Active Substance: PROPOFOL
     Indication: New onset refractory status epilepticus
     Dosage: 26.6 MILLIGRAM/KILOGRAM, QH
     Route: 065
     Dates: start: 2016
  5. THIOPENTAL SODIUM [Suspect]
     Active Substance: THIOPENTAL SODIUM
     Indication: New onset refractory status epilepticus
     Dosage: 3 MILLIGRAM/KILOGRAM, QH
     Route: 065
     Dates: start: 201608
  6. THIOPENTAL SODIUM [Suspect]
     Active Substance: THIOPENTAL SODIUM
     Dosage: 15 MILLIGRAM/KILOGRAM, QH
     Route: 065
     Dates: start: 2016
  7. THIOPENTAL SODIUM [Suspect]
     Active Substance: THIOPENTAL SODIUM
     Dosage: 2 MILLIGRAM/KILOGRAM, QH
     Route: 065
  8. KETAMINE [Suspect]
     Active Substance: KETAMINE
     Indication: New onset refractory status epilepticus
     Dosage: 24 MILLIGRAM/KILOGRAM, QH
     Route: 065
     Dates: start: 201608
  9. SEVOFLURANE [Suspect]
     Active Substance: SEVOFLURANE
     Indication: New onset refractory status epilepticus
     Dosage: UNK
     Route: 065
     Dates: start: 2016
  10. PHENYTOIN [Suspect]
     Active Substance: PHENYTOIN
     Indication: New onset refractory status epilepticus
     Dosage: LOADING DOSE OF 800 MILLIGRAM
     Route: 065
     Dates: start: 201608
  11. PHENYTOIN [Suspect]
     Active Substance: PHENYTOIN
     Dosage: 500 MILLIGRAM, QD
     Route: 065
     Dates: start: 201608
  12. PHENYTOIN [Suspect]
     Active Substance: PHENYTOIN
     Dosage: 250-750 MG/DAY
     Route: 065
     Dates: start: 201608
  13. LEVETIRACETAM [Suspect]
     Active Substance: LEVETIRACETAM
     Indication: New onset refractory status epilepticus
     Dosage: 3000 MILLIGRAM, QD
     Route: 065
     Dates: start: 201608
  14. LEVETIRACETAM [Suspect]
     Active Substance: LEVETIRACETAM
     Dosage: 2000-3000 MG/DAY
     Route: 042
     Dates: start: 201608
  15. LEVETIRACETAM [Suspect]
     Active Substance: LEVETIRACETAM
     Dosage: 3000 MILLIGRAM, QD
     Route: 065
  16. VALPROIC ACID [Suspect]
     Active Substance: VALPROIC ACID
     Indication: New onset refractory status epilepticus
     Dosage: 500-2000 MG/DAY
     Route: 065
     Dates: start: 201608
  17. LACOSAMIDE [Suspect]
     Active Substance: LACOSAMIDE
     Indication: New onset refractory status epilepticus
     Dosage: 400 MILLIGRAM, QD
     Route: 065
     Dates: start: 201608
  18. LACOSAMIDE [Suspect]
     Active Substance: LACOSAMIDE
     Dosage: 400-600 MG/DAY
     Route: 065
  19. LACOSAMIDE [Suspect]
     Active Substance: LACOSAMIDE
     Dosage: 600 MILLIGRAM, QD
     Route: 065
  20. PHENOBARBITAL [Suspect]
     Active Substance: PHENOBARBITAL
     Indication: New onset refractory status epilepticus
     Dosage: 200 MILLIGRAM, QD
     Route: 065
     Dates: start: 201608
  21. PHENOBARBITAL [Suspect]
     Active Substance: PHENOBARBITAL
     Dosage: 200-300 MG/DAY
     Dates: start: 201608
  22. PHENOBARBITAL [Suspect]
     Active Substance: PHENOBARBITAL
     Dosage: 200 MILLIGRAM, QD
     Route: 065
     Dates: start: 2016
  23. PHENOBARBITAL [Suspect]
     Active Substance: PHENOBARBITAL
     Dosage: 300 MILLIGRAM, QD
     Route: 065
  24. TOPIRAMATE [Suspect]
     Active Substance: TOPIRAMATE
     Indication: New onset refractory status epilepticus
     Dosage: 300-600 MG/DAY
     Route: 065
     Dates: start: 201608
  25. PERAMPANEL [Suspect]
     Active Substance: PERAMPANEL
     Indication: New onset refractory status epilepticus
     Dosage: 8-16 MG/DAY
     Dates: start: 201608
  26. PERAMPANEL [Suspect]
     Active Substance: PERAMPANEL
     Dosage: 12 MILLIGRAM, QD
     Route: 065
  27. PERAMPANEL [Suspect]
     Active Substance: PERAMPANEL
     Dosage: 8 MILLIGRAM, QD
     Route: 065
  28. PRIVIGEN [Suspect]
     Active Substance: HUMAN IMMUNOGLOBULIN G
     Indication: New onset refractory status epilepticus
     Dosage: 0.4 GRAM PER KILOGRAM, BID
     Route: 042
     Dates: start: 2016
  29. METHYLPREDNISOLONE [Suspect]
     Active Substance: METHYLPREDNISOLONE
     Indication: New onset refractory status epilepticus
     Dosage: 1 GRAM, QD
     Route: 042
     Dates: start: 2016
  30. LORAZEPAM [Concomitant]
     Active Substance: LORAZEPAM
     Indication: Product used for unknown indication
     Dosage: UNK
     Route: 065
     Dates: start: 201608

REACTIONS (6)
  - Acute lung injury [Unknown]
  - Bradycardia [Unknown]
  - Multiple organ dysfunction syndrome [Unknown]
  - Hypotension [Unknown]
  - Treatment failure [Unknown]
  - Off label use [Unknown]
